FAERS Safety Report 4415228-4 (Version None)
Quarter: 2004Q3

REPORT INFORMATION
  Report Type: 
  Country: None (occurrence: None)
  Receive Date: 20040804
  Receipt Date: 20040803
  Transmission Date: 20050211
  Serious: Yes (Life-Threatening, Hospitalization, Disabling, Other)
  Sender: FDA-Public Use
  Company Number: US-GLAXOSMITHKLINE-A0520725A

PATIENT
  Sex: Female

DRUGS (3)
  1. WELLBUTRIN [Suspect]
     Indication: ILL-DEFINED DISORDER
     Dosage: 60TAB UNKNOWN
     Route: 048
  2. COCAINE [Concomitant]
  3. MARIJUANA [Concomitant]

REACTIONS (4)
  - CARDIAC ARREST [None]
  - CONVULSION [None]
  - HEPATIC ENZYME INCREASED [None]
  - OVERDOSE [None]
